FAERS Safety Report 4983517-0 (Version None)
Quarter: 2006Q2

REPORT INFORMATION
  Report Type: 
  Country: None (occurrence: None)
  Receive Date: 20060419
  Receipt Date: 20060328
  Transmission Date: 20061013
  Serious: Yes (Other)
  Sender: FDA-Public Use
  Company Number: CO200603007278

PATIENT
  Sex: Female

DRUGS (4)
  1. CYMBALTA [Suspect]
     Indication: NEUROPATHY PERIPHERAL
     Dosage: OTHER EVERY 12-HOUR, ORAL
     Route: 048
     Dates: start: 20060304, end: 20060315
  2. GABAPENTIN [Concomitant]
  3. ACETAMINOPHEN [Concomitant]
  4. INSULIN SUSPENSION, NPH (INSULIN INJECTION, ISOPHANE) [Concomitant]

REACTIONS (2)
  - PURPURA [None]
  - SKIN HAEMORRHAGE [None]
